FAERS Safety Report 5410329-6 (Version None)
Quarter: 2007Q3

REPORT INFORMATION
  Report Type: 
  Country: None (occurrence: None)
  Receive Date: 20070808
  Receipt Date: 20070724
  Transmission Date: 20080115
  Serious: Yes (Other)
  Sender: FDA-Public Use
  Company Number: PHBS2007JP11796

PATIENT
  Age: 78 Year
  Sex: Male

DRUGS (1)
  1. VISUDYNE [Suspect]
     Indication: POLYPOIDAL CHOROIDAL VASCULOPATHY

REACTIONS (4)
  - CHORIORETINAL ATROPHY [None]
  - CHORIORETINAL SCAR [None]
  - CHOROIDAL NEOVASCULARISATION [None]
  - CONDITION AGGRAVATED [None]
